FAERS Safety Report 4873463-5 (Version None)
Quarter: 2005Q4

REPORT INFORMATION
  Report Type: 
  Country: None (occurrence: None)
  Receive Date: 20051201
  Receipt Date: 20050821
  Transmission Date: 20060501
  Serious: No
  Sender: FDA-Public Use
  Company Number: 2005PV001374

PATIENT
  Age: 86 Year
  Sex: Female

DRUGS (10)
  1. BYETTA [Suspect]
     Indication: DIABETES MELLITUS NON-INSULIN-DEPENDENT
     Dosage: 5 MCG;QD;SC
     Route: 058
     Dates: start: 20050725
  2. ACTOS [Concomitant]
  3. GLIPIZIDE [Concomitant]
  4. GLUCOTROL [Concomitant]
  5. PRANDIN [Concomitant]
  6. VASOTEC [Concomitant]
  7. HYZAAR [Concomitant]
  8. PREVACID [Concomitant]
  9. CLARINEX [Concomitant]
  10. MULTIVITAMIN [Concomitant]

REACTIONS (3)
  - BLOOD GLUCOSE DECREASED [None]
  - FEELING JITTERY [None]
  - SOMNOLENCE [None]
